FAERS Safety Report 19242284 (Version 1)
Quarter: 2021Q2

REPORT INFORMATION
  Report Type: Report from Study
  Country: ES (occurrence: ES)
  Receive Date: 20210510
  Receipt Date: 20210510
  Transmission Date: 20210717
  Serious: Yes (Other)
  Sender: FDA-Public Use
  Company Number: ES-ROCHE-2823929

PATIENT
  Age: 72 Year
  Sex: Male

DRUGS (2)
  1. CABOZANTINIB [Suspect]
     Active Substance: CABOZANTINIB
     Indication: NEUROENDOCRINE TUMOUR
     Route: 048
     Dates: start: 20210303
  2. ATEZOLIZUMAB. [Suspect]
     Active Substance: ATEZOLIZUMAB
     Indication: NEUROENDOCRINE TUMOUR
     Route: 041
     Dates: start: 20210303

REACTIONS (6)
  - Decreased appetite [Unknown]
  - Stomatitis [Unknown]
  - Hypomagnesaemia [Unknown]
  - Myasthenia gravis [Unknown]
  - Stomatitis [Unknown]
  - Constipation [Unknown]

NARRATIVE: CASE EVENT DATE: 20210304
